FAERS Safety Report 13049284 (Version 2)
Quarter: 2016Q4

REPORT INFORMATION
  Report Type: Spontaneous
  Country: LB (occurrence: LB)
  Receive Date: 20161221
  Receipt Date: 20161229
  Transmission Date: 20170207
  Serious: Yes (Hospitalization)
  Sender: FDA-Public Use
  Company Number: LB-APOTEX-2016AP015906

PATIENT
  Age: 50 Year
  Sex: Female

DRUGS (15)
  1. LITHIUM CARBONATE. [Suspect]
     Active Substance: LITHIUM CARBONATE
     Dosage: 800 MG, QD
     Route: 065
  2. LEVOTHYROXINE SODIUM. [Concomitant]
     Active Substance: LEVOTHYROXINE SODIUM
     Indication: HYPOTHYROIDISM
     Dosage: 100 ?G, QD
     Route: 065
  3. FLUOXETINE [Suspect]
     Active Substance: FLUOXETINE HYDROCHLORIDE
     Indication: BIPOLAR DISORDER
     Dosage: 20 MG, QD
     Route: 065
  4. DIAZEPAM. [Suspect]
     Active Substance: DIAZEPAM
     Indication: BIPOLAR DISORDER
     Dosage: 10 MG, QD
     Route: 065
  5. QUETIAPINE                         /01270902/ [Suspect]
     Active Substance: QUETIAPINE FUMARATE
     Indication: BIPOLAR DISORDER
     Dosage: 100 MG, QD
     Route: 065
  6. ESCITALOPRAM [Suspect]
     Active Substance: ESCITALOPRAM OXALATE
     Indication: BIPOLAR DISORDER
     Dosage: 10 MG, QD
     Route: 065
  7. QUETIAPINE                         /01270902/ [Suspect]
     Active Substance: QUETIAPINE FUMARATE
     Dosage: 300 MG, QD
     Route: 065
  8. VALSARTAN 160 [Suspect]
     Active Substance: VALSARTAN
     Indication: HYPOTHYROIDISM
  9. APO-OLANZAPINE [Suspect]
     Active Substance: OLANZAPINE
     Dosage: 5 MG, QD
     Route: 065
  10. APO-OLANZAPINE [Suspect]
     Active Substance: OLANZAPINE
     Indication: BIPOLAR DISORDER
     Dosage: 15 MG, QD
     Route: 065
  11. DIAZEPAM. [Suspect]
     Active Substance: DIAZEPAM
     Dosage: 15 MG, QD
     Route: 065
  12. LITHIUM CARBONATE. [Suspect]
     Active Substance: LITHIUM CARBONATE
     Indication: BIPOLAR DISORDER
     Dosage: 400 MG, QD
     Route: 065
  13. VALSARTAN 160 [Suspect]
     Active Substance: VALSARTAN
     Indication: HYPERTENSION
     Dosage: 160 MG, QD
     Route: 065
  14. LITHIUM CARBONATE. [Suspect]
     Active Substance: LITHIUM CARBONATE
     Dosage: 400 MG, BID
     Route: 065
  15. LITHIUM CARBONATE. [Suspect]
     Active Substance: LITHIUM CARBONATE
     Dosage: 600 MG, QD
     Route: 065

REACTIONS (7)
  - Salivary hypersecretion [Recovered/Resolved]
  - Drug interaction [Unknown]
  - Dysgeusia [Unknown]
  - Vomiting [Unknown]
  - Polyuria [Unknown]
  - Nausea [Unknown]
  - Toxicity to various agents [Unknown]
